FAERS Safety Report 12663275 (Version 1)
Quarter: 2016Q3

REPORT INFORMATION
  Report Type: Spontaneous
  Country: US (occurrence: US)
  Receive Date: 20160818
  Receipt Date: 20160818
  Transmission Date: 20161109
  Serious: Yes (Hospitalization)
  Sender: FDA-Public Use
  Company Number: US-TEVA-685024USA

PATIENT
  Age: 62 Year
  Sex: Female

DRUGS (17)
  1. METOPROLOL. [Concomitant]
     Active Substance: METOPROLOL
  2. AMPYRA [Concomitant]
     Active Substance: DALFAMPRIDINE
  3. GABAPENTIN. [Concomitant]
     Active Substance: GABAPENTIN
  4. MODAFINIL. [Concomitant]
     Active Substance: MODAFINIL
  5. TAMSULOSIN [Concomitant]
     Active Substance: TAMSULOSIN
  6. DILTIAZEM. [Concomitant]
     Active Substance: DILTIAZEM
  7. ATENOLOL. [Concomitant]
     Active Substance: ATENOLOL
  8. COPAXONE [Suspect]
     Active Substance: GLATIRAMER ACETATE
     Indication: MULTIPLE SCLEROSIS
     Route: 058
     Dates: start: 20140102
  9. DIOVAN [Concomitant]
     Active Substance: VALSARTAN
  10. PANTOPRAZOLE [Concomitant]
     Active Substance: PANTOPRAZOLE SODIUM
  11. HCTZ [Concomitant]
     Active Substance: HYDROCHLOROTHIAZIDE
  12. ONDANSETRON [Concomitant]
     Active Substance: ONDANSETRON
  13. XARELTO [Concomitant]
     Active Substance: RIVAROXABAN
  14. OMEPRAZOLE. [Concomitant]
     Active Substance: OMEPRAZOLE
  15. POTASSIUM [Concomitant]
     Active Substance: POTASSIUM
  16. BACLOFEN. [Concomitant]
     Active Substance: BACLOFEN
  17. PROVIGIL [Concomitant]
     Active Substance: MODAFINIL

REACTIONS (4)
  - Palpitations [Unknown]
  - Abdominal discomfort [Unknown]
  - Drug dose omission [Unknown]
  - Nausea [Unknown]

NARRATIVE: CASE EVENT DATE: 2016
